FAERS Safety Report 5900493-4 (Version None)
Quarter: 2008Q3

REPORT INFORMATION
  Report Type: 
  Country: None (occurrence: None)
  Receive Date: 20080926
  Receipt Date: 20080911
  Transmission Date: 20090109
  Serious: No
  Sender: FDA-Public Use
  Company Number: US-B.I. PHARMACEUTICALS,INC./RIDGEFIELD-2008-BP-13055BP

PATIENT

DRUGS (7)
  1. AGGRENOX [Suspect]
     Dates: end: 20080423
  2. VYTORIN [Concomitant]
  3. LIPOFLAVONOID [Concomitant]
     Dosage: BD
  4. NORFLEX [Concomitant]
     Dosage: BID PRN
  5. TOREDIL [Concomitant]
     Dosage: 10MG BID PRN
  6. LOVAZA [Concomitant]
     Dosage: TID
  7. ASPIRIN [Concomitant]
     Dosage: 1 QD

REACTIONS (4)
  - DIZZINESS [None]
  - HYPOTENSION [None]
  - NAUSEA [None]
  - VOMITING [None]
